FAERS Safety Report 8122129-7 (Version None)
Quarter: 2012Q1

REPORT INFORMATION
  Report Type: 
  Country: None (occurrence: None)
  Receive Date: 20120208
  Receipt Date: 20120127
  Transmission Date: 20120608
  Serious: Yes (Hospitalization)
  Sender: FDA-Public Use
  Company Number: US-BAYER-2011-058769

PATIENT
  Age: 26 Year
  Sex: Female
  Weight: 70.295 kg

DRUGS (3)
  1. IBUPROFEN [Concomitant]
     Indication: PAIN
     Dosage: 600 MG, UNK
     Route: 048
     Dates: start: 20090706
  2. CYCLOBENZAPRINE [Concomitant]
     Indication: MUSCLE RELAXANT THERAPY
     Dosage: 10 MG, UNK
     Route: 048
     Dates: start: 20090706
  3. YASMIN [Suspect]
     Indication: MENSTRUATION IRREGULAR
     Dosage: UNK
     Route: 048
     Dates: start: 20080703, end: 20090708

REACTIONS (9)
  - PAIN [None]
  - PAIN IN EXTREMITY [None]
  - INJURY [None]
  - OEDEMA PERIPHERAL [None]
  - BACK PAIN [None]
  - PELVIC VENOUS THROMBOSIS [None]
  - MUSCLE SPASMS [None]
  - EMOTIONAL DISTRESS [None]
  - ANXIETY [None]
